FAERS Safety Report 6034292-2 (Version None)
Quarter: 2009Q1

REPORT INFORMATION
  Report Type: 
  Country: None (occurrence: None)
  Receive Date: 20090112
  Receipt Date: 20090103
  Transmission Date: 20090719
  Serious: Yes (Death, Other)
  Sender: FDA-Public Use
  Company Number: US-BAYER-200712393BWH

PATIENT
  Age: 86 Year
  Sex: Male
  Weight: 62 kg

DRUGS (2)
  1. NEXAVAR [Suspect]
     Indication: SARCOMA OF SKIN
     Dosage: TOTAL DAILY DOSE: 800 MG  UNIT DOSE: 200 MG
     Route: 048
     Dates: start: 20070714, end: 20070718
  2. LIMBITROL [Concomitant]
     Indication: INSOMNIA

REACTIONS (8)
  - CONSTIPATION [None]
  - DEATH [None]
  - DYSPHAGIA [None]
  - GLOSSODYNIA [None]
  - HAEMATURIA [None]
  - ORAL PAIN [None]
  - OROPHARYNGEAL PAIN [None]
  - WEIGHT DECREASED [None]
